FAERS Safety Report 8672693 (Version 2)
Quarter: 2013Q4

REPORT INFORMATION
  Report Type: Spontaneous
  Country: BE (occurrence: BE)
  Receive Date: 20120719
  Receipt Date: 20131031
  Transmission Date: 20140711
  Serious: Yes (Hospitalization)
  Sender: FDA-Public Use
  Company Number: BE-009507513-1207BEL000789

PATIENT
  Sex: Female

DRUGS (1)
  1. AACIFEMINE [Suspect]

REACTIONS (2)
  - Abdominal distension [Unknown]
  - Abdominal pain [Unknown]
